FAERS Safety Report 24928246 (Version 1)
Quarter: 2025Q1

REPORT INFORMATION
  Report Type: Spontaneous
  Country: US (occurrence: None)
  Receive Date: 20250205
  Receipt Date: 20250205
  Transmission Date: 20250408
  Serious: Yes (Hospitalization)
  Sender: FDA-CTU
  Company Number: None

PATIENT
  Sex: Female

DRUGS (11)
  1. TERIFLUNOMIDE [Suspect]
     Active Substance: TERIFLUNOMIDE
     Indication: Multiple sclerosis
     Dosage: OTHER QUANTITY : TAKE 1 TABLET;?FREQUENCY : DAILY;?
     Route: 048
     Dates: start: 20230331
  2. AMPYRA [Concomitant]
     Active Substance: DALFAMPRIDINE
  3. AUBAGIO [Concomitant]
     Active Substance: TERIFLUNOMIDE
  4. BACLOFEN [Concomitant]
     Active Substance: BACLOFEN
  5. BIOTIN [Concomitant]
     Active Substance: BIOTIN
  6. CALC 600+D3 [Concomitant]
  7. CALCIUM\CHOLECALCIFEROL [Concomitant]
     Active Substance: CALCIUM\CHOLECALCIFEROL
  8. FISH OIL [Concomitant]
     Active Substance: FISH OIL
  9. FUROSEMIDE [Concomitant]
     Active Substance: FUROSEMIDE
  10. HYDROXYZINE HYDROCHLORIDE [Concomitant]
     Active Substance: HYDROXYZINE HYDROCHLORIDE
  11. LASIX [Concomitant]
     Active Substance: FUROSEMIDE

REACTIONS (1)
  - Hospitalisation [None]
